FAERS Safety Report 6249890-0 (Version None)
Quarter: 2009Q2

REPORT INFORMATION
  Report Type: 
  Country: None (occurrence: None)
  Receive Date: 20090629
  Receipt Date: 20090414
  Transmission Date: 20091009
  Serious: Yes (Other)
  Sender: FDA-Public Use
  Company Number: US-BAYER-200910813BCC

PATIENT
  Age: 59 Year
  Sex: Female
  Weight: 81 kg

DRUGS (6)
  1. ALKA-SELTZER NIGHT COLD [Suspect]
     Indication: NASOPHARYNGITIS
     Dosage: TOOK 2 TEASPOONS ON 13-MAR-2009, 2 ON 14-MAR-2009 AND 3 ON 15-MAR-2009 NIGHT
     Route: 048
     Dates: start: 20090313
  2. UNKNOWN BENICAR [Concomitant]
     Dosage: UNK
     Route: 065
     Dates: start: 20061001
  3. LEXAPRO [Concomitant]
     Dosage: UNK
     Route: 065
     Dates: start: 20060401
  4. GLUCOSAMINE [Concomitant]
     Indication: DRUG USE FOR UNKNOWN INDICATION
     Dosage: UNK
     Route: 065
  5. GINGER ROOT [Concomitant]
     Indication: DRUG USE FOR UNKNOWN INDICATION
     Dosage: UNK
     Route: 065
  6. UNKNOWN OTC FOR OSTEOARTHRITIS [Concomitant]
     Indication: OSTEOARTHRITIS
     Dosage: UNK
     Route: 065

REACTIONS (5)
  - HALLUCINATION, AUDITORY [None]
  - HALLUCINATION, VISUAL [None]
  - MOBILITY DECREASED [None]
  - SENSATION OF HEAVINESS [None]
  - THINKING ABNORMAL [None]
